FAERS Safety Report 8275983-2 (Version None)
Quarter: 2012Q2

REPORT INFORMATION
  Report Type: 
  Country: None (occurrence: None)
  Receive Date: 20120412
  Receipt Date: 20120409
  Transmission Date: 20120825
  Serious: No
  Sender: FDA-Public Use
  Company Number: US-PFIZER INC-2012088321

PATIENT
  Sex: Female
  Weight: 64.399 kg

DRUGS (5)
  1. CENTRUM [Suspect]
     Dosage: UNK
     Dates: start: 19940101, end: 19970101
  2. MULTI-VITAMINS [Suspect]
     Indication: VITAMIN SUPPLEMENTATION
     Dosage: UNK, DAILY
     Dates: start: 19970101
  3. TIMOLOL MALEATE [Suspect]
     Indication: GLAUCOMA
     Dosage: UNK, TWICE DAILY
     Dates: start: 20090101
  4. XALATAN [Suspect]
     Indication: GLAUCOMA
     Dosage: UNK, DAILY
  5. LUTEIN [Suspect]
     Indication: GLAUCOMA
     Dosage: UNK
     Dates: start: 20090101

REACTIONS (2)
  - HYPERTENSION [None]
  - HYPERSENSITIVITY [None]
